FAERS Safety Report 7427799-4 (Version None)
Quarter: 2011Q2

REPORT INFORMATION
  Report Type: 
  Country: None (occurrence: None)
  Receive Date: 20110421
  Receipt Date: 20110413
  Transmission Date: 20111010
  Serious: Yes (Other)
  Sender: FDA-Public Use
  Company Number: US-ASTRAZENECA-2009UW04344

PATIENT
  Age: 707 Month
  Sex: Female

DRUGS (19)
  1. TEMAZEPAM [Concomitant]
     Dates: start: 20080430
  2. IMITEX [Concomitant]
     Dates: start: 20060101
  3. METOPROLOL [Concomitant]
     Dosage: 25 AT NIGHT
     Dates: start: 20060101
  4. SEROQUEL [Suspect]
     Route: 048
     Dates: start: 20060101, end: 20080430
  5. CYMBALTA [Concomitant]
     Dosage: 30 MG TO 60 MG DAILY
     Dates: start: 20080430
  6. LEVOTHROID [Concomitant]
     Dates: start: 20060101
  7. PLAVIX [Concomitant]
     Dates: start: 20060101
  8. ZOLOFT [Concomitant]
     Dates: start: 20060101
  9. FOSAMAX [Concomitant]
     Dates: start: 20060101
  10. SEROQUEL [Suspect]
     Route: 048
     Dates: start: 20060101, end: 20080430
  11. PREVACID [Concomitant]
     Dates: start: 20060101
  12. TRAZODONE HCL [Concomitant]
     Dates: start: 20080430
  13. LISINOPRIL [Concomitant]
     Dates: start: 20060101
  14. CPAP [Concomitant]
     Dosage: 11/7 AT NIGHT
     Dates: start: 20060101
  15. GABAPENTIN [Concomitant]
     Dates: start: 20060101
  16. SEROQUEL [Suspect]
     Indication: DEPRESSION
     Route: 048
     Dates: start: 20050101, end: 20080101
  17. SEROQUEL [Suspect]
     Indication: SLEEP DISORDER
     Route: 048
     Dates: start: 20050101, end: 20080101
  18. CYTOMEL [Concomitant]
     Dates: start: 20060101
  19. FLEXERIL [Concomitant]
     Dates: start: 20060101, end: 20060101

REACTIONS (3)
  - NEUROPATHY PERIPHERAL [None]
  - DIABETES MELLITUS [None]
  - WEIGHT INCREASED [None]
